FAERS Safety Report 8315296-3 (Version None)
Quarter: 2012Q2

REPORT INFORMATION
  Report Type: 
  Country: None (occurrence: None)
  Receive Date: 20120426
  Receipt Date: 20120420
  Transmission Date: 20120825
  Serious: Yes (Other)
  Sender: FDA-Public Use
  Company Number: US-PFIZER INC-2012099881

PATIENT
  Sex: Female

DRUGS (1)
  1. EFFEXOR XR [Suspect]
     Indication: MENTAL DISORDER
     Dosage: UNK

REACTIONS (4)
  - EMOTIONAL DISORDER [None]
  - UTERINE DISORDER [None]
  - ENDOMETRIOSIS [None]
  - HOT FLUSH [None]
